FAERS Safety Report 4294956-8 (Version None)
Quarter: 2004Q1

REPORT INFORMATION
  Report Type: 
  Country: None (occurrence: None)
  Receive Date: 20040216
  Receipt Date: 20030313
  Transmission Date: 20041129
  Serious: No
  Sender: FDA-Public Use
  Company Number: US-GLAXOSMITHKLINE-A0400231A

PATIENT
  Age: 48 Year
  Sex: Female

DRUGS (8)
  1. LAMICTAL [Suspect]
     Indication: BIPOLAR DISORDER
     Dosage: 100MG TWICE PER DAY
     Route: 048
     Dates: start: 20021101
  2. WELLBUTRIN [Concomitant]
     Route: 048
  3. TOPAMAX [Concomitant]
  4. CYTOMEL [Concomitant]
  5. XANAX [Concomitant]
  6. ZYPREXA [Concomitant]
  7. PAXIL [Concomitant]
     Indication: PREMENSTRUAL SYNDROME
     Route: 048
  8. SYNTHROID [Concomitant]

REACTIONS (8)
  - EATING DISORDER [None]
  - OEDEMA [None]
  - ORAL SOFT TISSUE DISORDER [None]
  - TONGUE COATED [None]
  - TONGUE DISORDER [None]
  - TONGUE ULCERATION [None]
  - URINARY RETENTION [None]
  - WEIGHT INCREASED [None]
